FAERS Safety Report 16344368 (Version 1)
Quarter: 2019Q2

REPORT INFORMATION
  Report Type: Spontaneous
  Country: FR (occurrence: FR)
  Receive Date: 20190522
  Receipt Date: 20190522
  Transmission Date: 20190711
  Serious: Yes (Other)
  Sender: FDA-Public Use
  Company Number: FR-PFIZER INC-2019210820

PATIENT
  Age: 77 Year
  Sex: Female

DRUGS (4)
  1. XANAX [Suspect]
     Active Substance: ALPRAZOLAM
     Dosage: UNK
  2. SPIRONOLACTONE. [Suspect]
     Active Substance: SPIRONOLACTONE
     Dosage: UNK
  3. MICARDIS [Suspect]
     Active Substance: TELMISARTAN
     Indication: HYPERTENSION
     Dosage: 80 MG, UNK
  4. SOTALEX [Suspect]
     Active Substance: SOTALOL
     Dosage: 80 MG, UNK

REACTIONS (5)
  - Anosmia [Unknown]
  - Decreased appetite [Unknown]
  - Dyspnoea [Unknown]
  - Blood pressure increased [Unknown]
  - Insomnia [Unknown]
